FAERS Safety Report 17159343 (Version 2)
Quarter: 2020Q1

REPORT INFORMATION
  Report Type: Spontaneous
  Country: DK (occurrence: DK)
  Receive Date: 20191216
  Receipt Date: 20200217
  Transmission Date: 20200409
  Serious: Yes (Other)
  Sender: FDA-Public Use
  Company Number: DK-GLAXOSMITHKLINE-DK2019206966

PATIENT
  Age: 76 Year
  Sex: Male

DRUGS (8)
  1. AMOROLFINE [Suspect]
     Active Substance: AMOROLFINE
     Indication: TRICHOPHYTOSIS
     Dosage: 6 DF
     Route: 061
  2. ITRACONAZOLE. [Suspect]
     Active Substance: ITRACONAZOLE
     Indication: TRICHOPHYTOSIS
     Dosage: 2 DF
     Route: 062
     Dates: start: 2013
  3. TERBINAFINE. [Suspect]
     Active Substance: TERBINAFINE
     Indication: PRODUCT USED FOR UNKNOWN INDICATION
     Dosage: UNK 2 COURSES OF TREATMENT (24 WEEKS)
     Route: 048
     Dates: start: 2013
  4. TERBINAFINE HYDROCHLORIDE. [Suspect]
     Active Substance: TERBINAFINE HYDROCHLORIDE
     Dosage: UNK (6 COURSES FOR 8 WEEKS, INCLUDING 2 COURSES ONCE APPLICATION ONLY)
     Route: 061
  5. KETOCONAZOLE. [Suspect]
     Active Substance: KETOCONAZOLE
     Indication: TRICHOPHYTOSIS
     Dosage: 6 DF
     Route: 061
  6. TERBINAFINE. [Suspect]
     Active Substance: TERBINAFINE
     Indication: TRICHOPHYTOSIS
     Dosage: 2 DF
     Route: 062
     Dates: start: 2013
  7. TERBINAFINE HYDROCHLORIDE. [Suspect]
     Active Substance: TERBINAFINE HYDROCHLORIDE
     Indication: TRICHOPHYTOSIS
     Dosage: UNK 4 COURSES OF TREATMENT (8 WEEKS)
     Route: 061
  8. TERBINAFINE. [Suspect]
     Active Substance: TERBINAFINE
     Dosage: 6 DF
     Route: 061

REACTIONS (4)
  - Pathogen resistance [Unknown]
  - Drug resistance [Unknown]
  - Drug ineffective [Unknown]
  - Treatment failure [Unknown]
